FAERS Safety Report 7528895-3 (Version None)
Quarter: 2011Q2

REPORT INFORMATION
  Report Type: 
  Country: None (occurrence: None)
  Receive Date: 20110520
  Receipt Date: 20110204
  Transmission Date: 20111010
  Serious: No
  Sender: FDA-Public Use
  Company Number: 023410

PATIENT
  Sex: Female

DRUGS (5)
  1. TOPIRAMATE [Concomitant]
  2. LACOSAMIDE [Suspect]
     Indication: CONVULSION
     Dosage: (UPWARD TITRATION), (100 MG BID), (200 MG BID)
     Dates: start: 20100621
  3. LACOSAMIDE [Suspect]
     Indication: CONVULSION
     Dosage: (UPWARD TITRATION), (100 MG BID), (200 MG BID)
     Dates: start: 20100615, end: 20100601
  4. VALPROATE SODIUM [Concomitant]
  5. LAMOTRIGINE [Concomitant]

REACTIONS (1)
  - WEIGHT INCREASED [None]
